FAERS Safety Report 22688415 (Version 3)
Quarter: 2024Q4

REPORT INFORMATION
  Report Type: Spontaneous
  Country: US (occurrence: US)
  Receive Date: 20230710
  Receipt Date: 20241112
  Transmission Date: 20250114
  Serious: Yes (Other)
  Sender: AMGEN
  Company Number: US-AMGEN-USASP2023118586

PATIENT
  Age: 61 Year
  Sex: Female

DRUGS (14)
  1. PREDNISONE [Suspect]
     Active Substance: PREDNISONE
     Indication: Paraneoplastic neurological syndrome
     Dosage: 60 MILLIGRAM, QD
     Route: 048
  2. PREDNISONE [Suspect]
     Active Substance: PREDNISONE
     Dosage: 10 MILLIGRAM, QD
     Route: 048
  3. RITUXIMAB [Suspect]
     Active Substance: RITUXIMAB
     Indication: Paraneoplastic neurological syndrome
     Dosage: UNK
     Route: 065
  4. Immunoglobulin [Concomitant]
     Dosage: UNK UNK, Q3WK
     Route: 042
  5. CYCLOPHOSPHAMIDE [Concomitant]
     Active Substance: CYCLOPHOSPHAMIDE
     Dosage: UNK
     Route: 065
  6. CLONAZEPAM [Concomitant]
     Active Substance: CLONAZEPAM
     Dosage: UNK
     Route: 065
  7. METHYLPREDNISOLONE [Concomitant]
     Active Substance: METHYLPREDNISOLONE
     Route: 065
  8. DOCETAXEL [Concomitant]
     Active Substance: DOCETAXEL
  9. THIAMINE [Concomitant]
     Active Substance: THIAMINE
  10. MELOXICAM [Concomitant]
     Active Substance: MELOXICAM
  11. DIAZEPAM [Concomitant]
     Active Substance: DIAZEPAM
  12. CYCLOBENZAPRINE [Concomitant]
     Active Substance: CYCLOBENZAPRINE
  13. BACLOFEN [Concomitant]
     Active Substance: BACLOFEN
  14. BOTULINUM TOXIN NOS [Concomitant]
     Active Substance: BOTULINUM TOXIN NOS

REACTIONS (4)
  - Paraneoplastic neurological syndrome [Unknown]
  - Cyanosis [Unknown]
  - Cough [Unknown]
  - Off label use [Unknown]
